FAERS Safety Report 17640274 (Version 1)
Quarter: 2020Q2

REPORT INFORMATION
  Report Type: Spontaneous
  Country: US (occurrence: US)
  Receive Date: 20200408
  Receipt Date: 20200408
  Transmission Date: 20200713
  Serious: Yes (Disabling)
  Sender: FDA-Public Use
  Company Number: US-009507513-2004USA001334

PATIENT
  Sex: Female

DRUGS (1)
  1. NEXPLANON [Suspect]
     Active Substance: ETONOGESTREL
     Indication: CONTRACEPTION
     Dosage: ONE IMPLANT, EVERY 3 YEARS
     Route: 059
     Dates: start: 20200319, end: 20200402

REACTIONS (5)
  - Medical device site discomfort [Not Recovered/Not Resolved]
  - Wrong technique in product usage process [Unknown]
  - Hypokinesia [Not Recovered/Not Resolved]
  - Circumstance or information capable of leading to medication error [Unknown]
  - Implant site pain [Unknown]

NARRATIVE: CASE EVENT DATE: 2020
